FAERS Safety Report 15366847 (Version 2)
Quarter: 2018Q4

REPORT INFORMATION
  Report Type: Spontaneous
  Country: BR (occurrence: BR)
  Receive Date: 20180910
  Receipt Date: 20181023
  Transmission Date: 20190204
  Serious: Yes (Hospitalization, Other)
  Sender: FDA-Public Use
  Company Number: BR-PFIZER INC-2018360012

PATIENT
  Sex: Female

DRUGS (1)
  1. FRONTAL XR [Suspect]
     Active Substance: ALPRAZOLAM
     Indication: DEPRESSION
     Dosage: 1 MG, 1X/DAY

REACTIONS (3)
  - Peripheral swelling [Recovered/Resolved]
  - Thrombosis [Recovered/Resolved]
  - Drug dependence [Not Recovered/Not Resolved]
